FAERS Safety Report 13394817 (Version 3)
Quarter: 2017Q2

REPORT INFORMATION
  Report Type: Spontaneous
  Country: JP (occurrence: JP)
  Receive Date: 20170403
  Receipt Date: 20170525
  Transmission Date: 20170830
  Serious: Yes (Other)
  Sender: FDA-Public Use
  Company Number: JP-ROCHE-1899095

PATIENT
  Age: 78 Year
  Sex: Female

DRUGS (4)
  1. LUCENTIS [Suspect]
     Active Substance: RANIBIZUMAB
     Indication: POLYPOIDAL CHOROIDAL VASCULOPATHY
     Dosage: 0.05 ML, UNK
     Route: 031
     Dates: start: 20161108, end: 20161108
  2. LUCENTIS [Suspect]
     Active Substance: RANIBIZUMAB
     Indication: AGE-RELATED MACULAR DEGENERATION
     Dosage: 0.05 ML, UNK
     Route: 031
     Dates: start: 20160830
  3. LUMIGAN [Concomitant]
     Active Substance: BIMATOPROST
     Indication: INTRAOCULAR PRESSURE TEST ABNORMAL
     Dosage: 1 GTT, QD
     Route: 047
  4. HYALEIN [Concomitant]
     Active Substance: HYALURONATE SODIUM
     Indication: CORNEAL DISORDER
     Dosage: 3 OR 4 GTT, UNK
     Route: 047

REACTIONS (2)
  - Detachment of retinal pigment epithelium [Not Recovered/Not Resolved]
  - Retinal haemorrhage [Recovered/Resolved]

NARRATIVE: CASE EVENT DATE: 20161202
